FAERS Safety Report 25015813 (Version 2)
Quarter: 2025Q2

REPORT INFORMATION
  Report Type: Spontaneous
  Country: ES (occurrence: ES)
  Receive Date: 20250227
  Receipt Date: 20250529
  Transmission Date: 20250717
  Serious: Yes (Other)
  Sender: JOHNSON AND JOHNSON
  Company Number: ES-JNJFOC-20250250503

PATIENT
  Age: 79 Year
  Sex: Female

DRUGS (1)
  1. DARZALEX [Suspect]
     Active Substance: DARATUMUMAB
     Indication: Plasma cell myeloma
     Route: 065

REACTIONS (2)
  - Toxic neuropathy [Unknown]
  - Visceral leishmaniasis [Unknown]
